FAERS Safety Report 8045399-2 (Version None)
Quarter: 2012Q1

REPORT INFORMATION
  Report Type: 
  Country: None (occurrence: None)
  Receive Date: 20120113
  Receipt Date: 20120111
  Transmission Date: 20120608
  Serious: Yes (Hospitalization)
  Sender: FDA-Public Use
  Company Number: IT-PFIZER INC-2012008165

PATIENT
  Age: 86 Year
  Sex: Male

DRUGS (4)
  1. ATORVASTATIN CALCIUM [Suspect]
     Indication: ISCHAEMIC CARDIOMYOPATHY
     Dosage: 40 MG, DAILY
     Dates: start: 20110801, end: 20111207
  2. LASIX [Concomitant]
  3. DUOPLAVIN [Suspect]
  4. CARVEDILOL [Concomitant]

REACTIONS (5)
  - PRURITUS [None]
  - JAUNDICE [None]
  - CHOLESTASIS [None]
  - CHROMATURIA [None]
  - DEFICIENCY OF BILE SECRETION [None]
